FAERS Safety Report 9528306 (Version 2)
Quarter: 2013Q4

REPORT INFORMATION
  Report Type: Spontaneous
  Country: JP (occurrence: JP)
  Receive Date: 20130917
  Receipt Date: 20131015
  Transmission Date: 20140711
  Serious: Yes (Other)
  Sender: FDA-Public Use
  Company Number: JP-009507513-1309JPN006499

PATIENT
  Age: 74 Year
  Sex: Male
  Weight: 49 kg

DRUGS (7)
  1. ESLAX [Suspect]
     Indication: NEUROMUSCULAR BLOCKING THERAPY
     Dosage: DAILY DOSAGE UNKNOWN
     Route: 042
  2. PROPOFOL [Suspect]
     Indication: GENERAL ANAESTHESIA
     Dosage: DAILY DOSAGE UNKNOWN
     Route: 065
  3. REMIFENTANIL HYDROCHLORIDE [Suspect]
     Indication: ANAESTHESIA PROCEDURE
     Dosage: DAILY DOSAGE UNKNOWN
     Route: 065
  4. REMIFENTANIL HYDROCHLORIDE [Suspect]
     Dosage: 0.1 MICROGRAM/KG/MIN
     Route: 041
  5. SEVOFLURANE [Suspect]
     Indication: MAINTENANCE OF ANAESTHESIA
     Dosage: DAILY DOSAGE UNKNOWN
     Route: 055
  6. OXYGEN [Concomitant]
     Indication: MAINTENANCE OF ANAESTHESIA
     Dosage: 2 L/MIN, DAILY DOSAGE UNKNOWN
     Route: 055
  7. ANAPEINE [Concomitant]
     Dosage: 5 ML, QD
     Route: 008

REACTIONS (3)
  - Ventricular tachycardia [Recovered/Resolved]
  - Electrocardiogram ST segment elevation [Recovered/Resolved]
  - Arteriospasm coronary [Recovered/Resolved]
